FAERS Safety Report 8525382-0 (Version None)
Quarter: 2012Q3

REPORT INFORMATION
  Report Type: 
  Country: None (occurrence: None)
  Receive Date: 20120720
  Receipt Date: 20120719
  Transmission Date: 20120928
  Serious: Yes (Death)
  Sender: FDA-Public Use
  Company Number: JP-ABBOTT-12P-087-0952684-00

PATIENT
  Sex: Male
  Weight: 78 kg

DRUGS (18)
  1. HUMIRA [Suspect]
     Indication: PSORIASIS
     Route: 058
     Dates: start: 20100609, end: 20100609
  2. HUMIRA [Suspect]
     Dates: start: 20100623, end: 20120509
  3. MAXACALCITOL [Concomitant]
     Indication: PSORIASIS
     Route: 061
  4. FAMOTIDINE [Concomitant]
     Indication: GASTRITIS PROPHYLAXIS
     Route: 048
     Dates: start: 20091202
  5. BIOTIN [Concomitant]
     Indication: PSORIASIS
     Route: 048
  6. MONOAMMONIUM GLYCYRRHIZINATE/GLYCINE/L-CYSTEINE HYDROCHLORIDE HYDRATE [Concomitant]
     Indication: PRODUCT USED FOR UNKNOWN INDICATION
     Route: 048
     Dates: start: 20091202
  7. PREDNISOLONE [Concomitant]
     Indication: PRODUCT USED FOR UNKNOWN INDICATION
     Route: 048
     Dates: start: 20091202
  8. PREDNISOLONE [Concomitant]
     Route: 048
  9. URSODIOL [Concomitant]
     Indication: PRODUCT USED FOR UNKNOWN INDICATION
     Route: 048
     Dates: start: 20091202
  10. FENOFIBRATE [Concomitant]
     Route: 048
  11. SHAKUYAKUKANZOTO [Concomitant]
     Indication: MUSCLE SPASMS
     Route: 048
  12. TELMISARTAN [Concomitant]
     Indication: HYPERTENSION
     Route: 048
     Dates: start: 20090930
  13. OLOPATADINE HCL [Concomitant]
     Indication: PSORIASIS
     Route: 048
  14. BETAMETHASONE BUTYRATE PROPIONATE [Concomitant]
     Indication: PSORIASIS
     Route: 061
  15. FENOFIBRATE [Concomitant]
     Indication: HYPERLIPIDAEMIA
     Route: 048
     Dates: start: 20091202
  16. GLICLAZIDE [Concomitant]
     Indication: DIABETES MELLITUS
     Route: 048
     Dates: start: 20100217
  17. CLOBETASOL PROPIONATE [Concomitant]
     Indication: PSORIASIS
     Route: 061
  18. RABEPRAZOLE SODIUM [Concomitant]
     Indication: PRODUCT USED FOR UNKNOWN INDICATION
     Route: 048

REACTIONS (1)
  - DEATH [None]
